FAERS Safety Report 11465023 (Version 1)
Quarter: 2015Q3

REPORT INFORMATION
  Report Type: Spontaneous
  Country: US (occurrence: US)
  Receive Date: 20150907
  Receipt Date: 20150907
  Transmission Date: 20151125
  Serious: Yes (Death)
  Sender: FDA-Public Use
  Company Number: US-ROCHE-1630770

PATIENT
  Age: 78 Year
  Sex: Female

DRUGS (1)
  1. ESBRIET [Suspect]
     Active Substance: PIRFENIDONE
     Indication: IDIOPATHIC PULMONARY FIBROSIS
     Dosage: STRENGTH: 267MG
     Route: 048
     Dates: start: 20150429

REACTIONS (1)
  - Death [Fatal]

NARRATIVE: CASE EVENT DATE: 20150818
